FAERS Safety Report 10313764 (Version 2)
Quarter: 2014Q3

REPORT INFORMATION
  Report Type: Spontaneous
  Country: US (occurrence: US)
  Receive Date: 20140718
  Receipt Date: 20140804
  Transmission Date: 20150326
  Serious: Yes (Death, Other)
  Sender: FDA-Public Use
  Company Number: US-SA-2014SA093283

PATIENT
  Age: 58 Year
  Sex: Male

DRUGS (23)
  1. METOCLOPRAMIDE. [Concomitant]
     Active Substance: METOCLOPRAMIDE
     Route: 048
     Dates: start: 20140303, end: 20140708
  2. SENSIPAR [Concomitant]
     Active Substance: CINACALCET HYDROCHLORIDE
     Dates: start: 20140414, end: 20140426
  3. ATORVASTATIN [Concomitant]
     Active Substance: ATORVASTATIN
     Route: 048
     Dates: start: 20131002, end: 20140708
  4. HYDROCODONE [Concomitant]
     Active Substance: HYDROCODONE
     Dosage: 325MG/10 MG TABS, TAKE 1-2 TABS AS NEEDED Q6H
     Dates: start: 20131002, end: 20140708
  5. NYSTATIN. [Concomitant]
     Active Substance: NYSTATIN
     Dosage: NYSTATIN POWDER APPLY TO GROIN AREA
     Dates: start: 20130624, end: 20140708
  6. ZOFRAN [Concomitant]
     Active Substance: ONDANSETRON HYDROCHLORIDE
     Dates: start: 20140303, end: 20140708
  7. MIDODRINE [Concomitant]
     Active Substance: MIDODRINE
     Dosage: 10 MG TABS
     Route: 048
     Dates: start: 20131002, end: 20140303
  8. ASCORBIC ACID/FOLIC ACID/VITAMIN B NOS [Concomitant]
     Dates: start: 20131121, end: 20140708
  9. NORCO [Concomitant]
     Active Substance: ACETAMINOPHEN\HYDROCODONE BITARTRATE
     Indication: PAIN
     Dosage: PRN Q 4 HR
     Dates: start: 20140521, end: 20140708
  10. SENSIPAR [Concomitant]
     Active Substance: CINACALCET HYDROCHLORIDE
     Dates: start: 20140226, end: 20140414
  11. KAYEXALATE [Concomitant]
     Active Substance: SODIUM POLYSTYRENE SULFONATE
     Dosage: Q DAY ON NON HD DAYS
     Dates: start: 20140205, end: 20140708
  12. METOCLOPRAMIDE. [Concomitant]
     Active Substance: METOCLOPRAMIDE
     Route: 048
     Dates: start: 20131002, end: 20140303
  13. SALBUTAMOL [Concomitant]
     Active Substance: ALBUTEROL
     Dosage: HF AS NEEDED
     Dates: start: 20131002, end: 20140708
  14. RENVELA [Suspect]
     Active Substance: SEVELAMER CARBONATE
     Indication: RENAL FAILURE CHRONIC
     Dosage: 6 WITH EACH MEAL AND 2 WITH EACH SNACK
     Route: 048
     Dates: start: 20131218, end: 20140708
  15. CYMBALTA [Concomitant]
     Active Substance: DULOXETINE HYDROCHLORIDE
     Dosage: FREQ: QD QHS
     Route: 048
     Dates: start: 20131002, end: 20140425
  16. NYSTOP [Concomitant]
     Active Substance: NYSTATIN
     Dosage: POWDER
     Dates: start: 20131002, end: 20140708
  17. PLAVIX [Concomitant]
     Active Substance: CLOPIDOGREL BISULFATE
     Route: 048
     Dates: start: 20131002, end: 20140708
  18. SENSIPAR [Concomitant]
     Active Substance: CINACALCET HYDROCHLORIDE
     Dates: start: 20140426, end: 20140620
  19. ASPIRIN. [Concomitant]
     Active Substance: ASPIRIN
     Route: 048
     Dates: start: 20131002, end: 20140708
  20. MIDODRINE [Concomitant]
     Active Substance: MIDODRINE
     Route: 048
     Dates: start: 20140303, end: 20140708
  21. SENSIPAR [Concomitant]
     Active Substance: CINACALCET HYDROCHLORIDE
     Dates: start: 20140620, end: 20140708
  22. CYMBALTA [Concomitant]
     Active Substance: DULOXETINE HYDROCHLORIDE
     Route: 048
     Dates: start: 20140425, end: 20140708
  23. NORCO [Concomitant]
     Active Substance: ACETAMINOPHEN\HYDROCODONE BITARTRATE
     Indication: PAIN
     Dosage: PRN TWICE A DAY
     Dates: start: 20140324, end: 20140521

REACTIONS (7)
  - Cellulitis [Fatal]
  - Malaise [Not Recovered/Not Resolved]
  - Amputation [Not Recovered/Not Resolved]
  - Overdose [Unknown]
  - Sepsis [Fatal]
  - Type 2 diabetes mellitus [Unknown]
  - Diabetic nephropathy [Unknown]

NARRATIVE: CASE EVENT DATE: 20131218
